FAERS Safety Report 14211384 (Version 3)
Quarter: 2018Q1

REPORT INFORMATION
  Report Type: Spontaneous
  Country: US (occurrence: US)
  Receive Date: 20171121
  Receipt Date: 20180116
  Transmission Date: 20180508
  Serious: Yes (Other)
  Sender: FDA-Public Use
  Company Number: US-BAYER-2017-219828

PATIENT
  Age: 9 Year
  Sex: Male

DRUGS (5)
  1. KOGENATE FS [Suspect]
     Active Substance: ANTIHEMOPHILIC FACTOR, HUMAN RECOMBINANT
     Indication: FACTOR VIII DEFICIENCY
     Dosage: 2 DF, ONCE. DUE TO NAUSEA AND HEADACHES (AS ADVISED BY DOCTOR)
     Dates: start: 20171117, end: 20171117
  2. KOGENATE FS [Suspect]
     Active Substance: ANTIHEMOPHILIC FACTOR, HUMAN RECOMBINANT
     Indication: FACTOR VIII DEFICIENCY
     Dosage: 2000U(+/- 10%) ROUTE PAC
     Dates: start: 20170823
  3. KOGENATE FS [Suspect]
     Active Substance: ANTIHEMOPHILIC FACTOR, HUMAN RECOMBINANT
     Indication: FACTOR VIII DEFICIENCY
     Dosage: 2000U(+/- 10%) ROUTE PAC
     Dates: start: 20170823
  4. KOGENATE FS [Suspect]
     Active Substance: ANTIHEMOPHILIC FACTOR, HUMAN RECOMBINANT
     Indication: FACTOR VIII DEFICIENCY
     Dosage: 2000U(+/- 10%) ROUTE PAC. LAST DOSE PRIOR THE EVENTS
     Dates: start: 20170926
  5. KOGENATE FS [Suspect]
     Active Substance: ANTIHEMOPHILIC FACTOR, HUMAN RECOMBINANT
     Indication: FACTOR VIII DEFICIENCY
     Dosage: 2000U(+/- 10%) ROUTE PAC
     Dates: start: 20170926

REACTIONS (5)
  - Contusion [None]
  - Nausea [None]
  - Accident [None]
  - Fall [None]
  - Post-traumatic headache [None]

NARRATIVE: CASE EVENT DATE: 20171117
